FAERS Safety Report 7065621-9 (Version None)
Quarter: 2010Q4

REPORT INFORMATION
  Report Type: 
  Country: None (occurrence: None)
  Receive Date: 20101027
  Receipt Date: 20101026
  Transmission Date: 20110411
  Serious: Yes (Other)
  Sender: FDA-Public Use
  Company Number: US-WYE-H18327110

PATIENT
  Sex: Female

DRUGS (8)
  1. EFFEXOR XR [Suspect]
     Indication: FATIGUE
     Route: 048
  2. EFFEXOR XR [Suspect]
     Indication: DEPRESSION
  3. METOPROLOL [Concomitant]
  4. GABAPENTIN [Concomitant]
  5. PRAVASTATIN [Concomitant]
     Indication: HYPERLIPIDAEMIA
     Route: 048
  6. LEVOTHYROXINE [Concomitant]
     Indication: HYPOTHYROIDISM
     Route: 048
  7. REBIF [Suspect]
     Indication: MULTIPLE SCLEROSIS
     Route: 058
     Dates: start: 20100801
  8. KEPPRA [Concomitant]
     Indication: CONVULSION
     Route: 048

REACTIONS (6)
  - DEJA VU [None]
  - DYSGEUSIA [None]
  - HYPOAESTHESIA [None]
  - MUSCLE SPASMS [None]
  - MUSCLE TWITCHING [None]
  - SIMPLE PARTIAL SEIZURES [None]
